FAERS Safety Report 11625778 (Version 1)
Quarter: 2015Q4

REPORT INFORMATION
  Report Type: Spontaneous
  Country: US (occurrence: US)
  Receive Date: 20151013
  Receipt Date: 20151013
  Transmission Date: 20160304
  Serious: No
  Sender: FDA-Public Use
  Company Number: US-PFIZER INC-2015326196

PATIENT
  Sex: Female

DRUGS (1)
  1. TIKOSYN [Suspect]
     Active Substance: DOFETILIDE
     Indication: HEART RATE IRREGULAR
     Dosage: 0.25 MG, IN MORNING AND AT NIGHT
     Route: 048

REACTIONS (6)
  - Visual acuity reduced [Not Recovered/Not Resolved]
  - Intentional product use issue [Recovered/Resolved]
  - Skin disorder [Not Recovered/Not Resolved]
  - Pruritus [Recovering/Resolving]
  - Dyspnoea [Recovered/Resolved]
  - Eyelid ptosis [Not Recovered/Not Resolved]
